FAERS Safety Report 21351946 (Version 3)
Quarter: 2022Q4

REPORT INFORMATION
  Report Type: Spontaneous
  Country: US (occurrence: US)
  Receive Date: 20220920
  Receipt Date: 20221115
  Transmission Date: 20230112
  Serious: Yes (Other)
  Sender: FDA-Public Use
  Company Number: US-MALLINCKRODT-T202204798

PATIENT
  Sex: Female

DRUGS (3)
  1. H.P. ACTHAR [Suspect]
     Active Substance: CORTICOTROPIN
     Indication: Rheumatoid nodule
     Dosage: 80 UNITS (1 MILLILITER) TWO TIMES A WEEK
     Route: 030
     Dates: start: 202206
  2. H.P. ACTHAR [Suspect]
     Active Substance: CORTICOTROPIN
     Indication: Rheumatoid arthritis
     Dosage: 1 MILLILITER, TWICE A WEEK
     Route: 030
     Dates: start: 2022
  3. H.P. ACTHAR [Suspect]
     Active Substance: CORTICOTROPIN
     Indication: Rheumatoid factor
     Dosage: UNK, DECREASED
     Route: 065
     Dates: start: 2022

REACTIONS (9)
  - Rheumatoid arthritis [Not Recovered/Not Resolved]
  - Dizziness [Unknown]
  - Illness [Unknown]
  - Alopecia [Not Recovered/Not Resolved]
  - Blood glucose fluctuation [Not Recovered/Not Resolved]
  - Intraocular pressure increased [Unknown]
  - Headache [Unknown]
  - Vomiting [Unknown]
  - Blood glucose increased [Not Recovered/Not Resolved]

NARRATIVE: CASE EVENT DATE: 20220101
